FAERS Safety Report 14147322 (Version 18)
Quarter: 2018Q2

REPORT INFORMATION
  Report Type: Report from Study
  Country: CA (occurrence: CA)
  Receive Date: 20171031
  Receipt Date: 20180404
  Transmission Date: 20180711
  Serious: Yes (Death, Hospitalization, Other)
  Sender: FDA-Public Use
  Company Number: PHHY2017CA140737

PATIENT
  Age: 62 Year
  Sex: Female

DRUGS (2)
  1. SANDOSTATIN LAR DEPOT [Suspect]
     Active Substance: OCTREOTIDE ACETATE
     Indication: CARCINOID TUMOUR
     Dosage: 20 MG, QMO
     Route: 030
     Dates: start: 20170821
  2. METOPROLOL. [Suspect]
     Active Substance: METOPROLOL
     Indication: PRODUCT USED FOR UNKNOWN INDICATION
     Dosage: 300 MG, QD
     Route: 048

REACTIONS (20)
  - Pruritus [Unknown]
  - Tachycardia [Unknown]
  - General physical health deterioration [Unknown]
  - Injection site pain [Unknown]
  - Pain [Unknown]
  - Blood pressure increased [Unknown]
  - Limb injury [Unknown]
  - Blood pressure decreased [Unknown]
  - Joint injury [Unknown]
  - Injection site abscess [Unknown]
  - Wound [Unknown]
  - Coma [Unknown]
  - Fall [Unknown]
  - Upper limb fracture [Unknown]
  - Body temperature decreased [Unknown]
  - Bronchospasm [Unknown]
  - Dizziness [Unknown]
  - Wrong technique in product usage process [Unknown]
  - Death [Fatal]
  - Injection site mass [Unknown]

NARRATIVE: CASE EVENT DATE: 2017
